FAERS Safety Report 12631184 (Version 2)
Quarter: 2016Q3

REPORT INFORMATION
  Report Type: Spontaneous
  Country: US (occurrence: US)
  Receive Date: 20160808
  Receipt Date: 20160808
  Transmission Date: 20161109
  Serious: No
  Sender: FDA-Public Use
  Company Number: US-BEH-2015052651

PATIENT
  Sex: Female
  Weight: 83 kg

DRUGS (22)
  1. ZYRTEC [Concomitant]
     Active Substance: CETIRIZINE HYDROCHLORIDE
  2. OSTEO-BIFLEX [Concomitant]
  3. ALLEGRA-D [Concomitant]
     Active Substance: FEXOFENADINE\PSEUDOEPHEDRINE
  4. EPIPEN [Concomitant]
     Active Substance: EPINEPHRINE
     Indication: ANAPHYLACTIC REACTION
  5. MOBIC [Concomitant]
     Active Substance: MELOXICAM
  6. PRAVASTATIN. [Concomitant]
     Active Substance: PRAVASTATIN
  7. PROAIR HFA [Concomitant]
     Active Substance: ALBUTEROL SULFATE
  8. PROBIOTIC [Concomitant]
     Active Substance: PROBIOTICS NOS
  9. DIPHENHYDRAMINE. [Concomitant]
     Active Substance: DIPHENHYDRAMINE
  10. BOTOX [Concomitant]
     Active Substance: ONABOTULINUMTOXINA
  11. PREVACID [Concomitant]
     Active Substance: LANSOPRAZOLE
  12. HIZENTRA [Suspect]
     Active Substance: HUMAN IMMUNOGLOBULIN G
     Indication: IMMUNODEFICIENCY COMMON VARIABLE
     Route: 058
  13. MAGNESIUM [Concomitant]
     Active Substance: MAGNESIUM
  14. FISH OIL [Concomitant]
     Active Substance: FISH OIL
  15. SINGULAIR [Concomitant]
     Active Substance: MONTELUKAST SODIUM
  16. TIZANIDINE. [Concomitant]
     Active Substance: TIZANIDINE
  17. CALCIUM [Concomitant]
     Active Substance: CALCIUM
  18. WELLBUTRIN [Concomitant]
     Active Substance: BUPROPION HYDROCHLORIDE
  19. QVAR [Concomitant]
     Active Substance: BECLOMETHASONE DIPROPIONATE
  20. ACETAMINOPHEN. [Concomitant]
     Active Substance: ACETAMINOPHEN
  21. LMX [Concomitant]
     Active Substance: LIDOCAINE
  22. METOPROLOL. [Concomitant]
     Active Substance: METOPROLOL

REACTIONS (2)
  - Fatigue [Unknown]
  - Headache [Unknown]
